FAERS Safety Report 25949290 (Version 2)
Quarter: 2025Q4

REPORT INFORMATION
  Report Type: Spontaneous
  Country: US (occurrence: US)
  Receive Date: 20251022
  Receipt Date: 20251114
  Transmission Date: 20260118
  Serious: Yes (Hospitalization, Other)
  Sender: FRESENIUS KABI
  Company Number: US-FreseniusKabi-FK202514119

PATIENT
  Age: 25 Year
  Sex: Female
  Weight: 87.7 kg

DRUGS (33)
  1. IFOSFAMIDE [Suspect]
     Active Substance: IFOSFAMIDE
     Indication: Ewing^s sarcoma
     Dosage: UNKNOWN
     Dates: start: 20250211, end: 20250215
  2. IFOSFAMIDE [Suspect]
     Active Substance: IFOSFAMIDE
     Dosage: UNKNOWN
     Dates: start: 20250318, end: 20250322
  3. IFOSFAMIDE [Suspect]
     Active Substance: IFOSFAMIDE
     Dosage: UNKNOWN
     Dates: start: 20250414, end: 20250420
  4. IFOSFAMIDE [Suspect]
     Active Substance: IFOSFAMIDE
     Dosage: UNKNOWN
     Dates: start: 20250512, end: 20250516
  5. IFOSFAMIDE [Suspect]
     Active Substance: IFOSFAMIDE
     Dosage: CONTINUOUS INFUSION?ONGOING
     Dates: start: 20251002
  6. OZEKIBART [Suspect]
     Active Substance: OZEKIBART
     Indication: Ewing^s sarcoma
     Dosage: FOA: SOLUTION FOR INFUSION?250 MG EVERY THREE WEEKS
     Route: 042
     Dates: end: 20250804
  7. OZEKIBART [Suspect]
     Active Substance: OZEKIBART
     Dosage: FOA: SOLUTION FOR INFUSION?250 MG EVERY THREE WEEKS
     Route: 042
     Dates: end: 20250904
  8. OZEKIBART [Suspect]
     Active Substance: OZEKIBART
     Dosage: FOA: SOLUTION FOR INFUSION?250 MG EVERY THREE WEEKS
     Route: 042
     Dates: start: 20250929, end: 20250929
  9. IRINOTECAN [Suspect]
     Active Substance: IRINOTECAN
     Indication: Ewing^s sarcoma
     Dosage: FOA: SOLUTION FOR INFUSION?250 MILLIGRAM(S)/SQ. METER ( MG/M2 ) EVERY THREE WEEKS [50 MG/M2 DAILY FO
     Route: 042
     Dates: end: 20250808
  10. IRINOTECAN [Suspect]
     Active Substance: IRINOTECAN
     Dosage: FOA: SOLUTION FOR INFUSION?187.5 MILLIGRAM(S)/SQ. METER ( MG/M2 ) EVERY THREE WEEKS [37.5 MG/M2 DAIL
     Route: 042
     Dates: end: 20250908
  11. IRINOTECAN [Suspect]
     Active Substance: IRINOTECAN
     Dosage: FOA: SOLUTION FOR INFUSION?37.5 MILLIGRAM(S)/SQ. METER ( MG/M2 ) FOR 1 DAYS?CYCLE 3 DAY 1
     Route: 042
     Dates: start: 20250929, end: 20250929
  12. IRINOTECAN [Suspect]
     Active Substance: IRINOTECAN
     Dosage: FOA: SOLUTION FOR INFUSION?50 MILLIGRAM(S)/SQ. METER ( MG/M2 ) FOR 1 DAYS?CYCLE 3, DAY 2
     Route: 042
     Dates: start: 20250930, end: 20250930
  13. TEMOZOLOMIDE [Suspect]
     Active Substance: TEMOZOLOMIDE
     Indication: Ewing^s sarcoma
     Dosage: 250 MILLIGRAM(S)/SQ. METER ( MG/M2 ) EVERY THREE WEEKS [50 MG/M2 DAILY FOR 5 DAYS]
     Route: 048
     Dates: end: 20250908
  14. TEMOZOLOMIDE [Suspect]
     Active Substance: TEMOZOLOMIDE
     Dosage: 500 MILLIGRAM(S)/SQ. METER ( MG/M2 ) EVERY THREE WEEKS [100 MG/M2 DAILY FOR 5 DAYS]
     Route: 048
     Dates: end: 20250808
  15. TEMOZOLOMIDE [Suspect]
     Active Substance: TEMOZOLOMIDE
     Dosage: 100 MILLIGRAM(S)/SQ. METER ( MG/M2 ) EVERY THREE WEEKS [50 MG/M2 DAILY FOR 2 DAYS]
     Route: 042
     Dates: start: 20250929, end: 20250930
  16. SYMBICORT [Concomitant]
     Active Substance: BUDESONIDE\FORMOTEROL FUMARATE DIHYDRATE
     Indication: Product used for unknown indication
     Dates: start: 20250207
  17. GRANISETRON [Concomitant]
     Active Substance: GRANISETRON
     Indication: Product used for unknown indication
     Dates: start: 20250419
  18. HYDROXYZINE [Concomitant]
     Active Substance: HYDROXYZINE HYDROCHLORIDE
     Indication: Product used for unknown indication
     Dates: start: 20250218
  19. ETHINYL ESTRADIOL\NORETHINDRONE ACETATE [Concomitant]
     Active Substance: ETHINYL ESTRADIOL\NORETHINDRONE ACETATE
     Indication: Product used for unknown indication
     Dates: start: 20250723
  20. NARCAN [Concomitant]
     Active Substance: NALOXONE HYDROCHLORIDE
     Indication: Product used for unknown indication
     Dates: start: 20250207
  21. NARCAN [Concomitant]
     Active Substance: NALOXONE HYDROCHLORIDE
     Dates: start: 20250801
  22. OXYCODONE [Concomitant]
     Active Substance: OXYCODONE
     Indication: Product used for unknown indication
     Dates: start: 20250707
  23. POLYETHYLENE GLYCOL [Concomitant]
     Active Substance: POLYETHYLENE GLYCOL
     Indication: Product used for unknown indication
     Dates: start: 20250727
  24. Potassium bicarbonate; Sodium phosphate [Concomitant]
     Indication: Product used for unknown indication
     Dosage: FOA: TABLET
     Dates: start: 20250526
  25. VITAMINS [Concomitant]
     Active Substance: VITAMINS
     Indication: Product used for unknown indication
     Dates: start: 20241105
  26. PROCHLORPERAZINE MALEATE [Concomitant]
     Active Substance: PROCHLORPERAZINE MALEATE
     Indication: Product used for unknown indication
     Dates: start: 20250730
  27. SENNOSIDES A AND B [Concomitant]
     Active Substance: SENNOSIDES A AND B
     Indication: Product used for unknown indication
     Dosage: FOA: TABLET
     Dates: start: 20250727
  28. POTASSIUM CHLORIDE [Concomitant]
     Active Substance: POTASSIUM CHLORIDE
     Indication: Product used for unknown indication
     Dosage: FOA: TABLET
     Dates: start: 20250526
  29. MORPHINE HYDROCHLORIDE [Concomitant]
     Active Substance: MORPHINE HYDROCHLORIDE
     Indication: Product used for unknown indication
     Dosage: FOA: TABLET
     Dates: start: 20250727
  30. LOPERAMIDE HYDROCHLORIDE [Concomitant]
     Active Substance: LOPERAMIDE HYDROCHLORIDE
     Indication: Product used for unknown indication
     Dates: start: 20250731
  31. LORATADINE [Concomitant]
     Active Substance: LORATADINE
     Indication: Product used for unknown indication
     Dates: start: 20241119
  32. LORATADINE [Concomitant]
     Active Substance: LORATADINE
     Dates: start: 20250731
  33. CEFIXIME [Concomitant]
     Active Substance: CEFIXIME
     Indication: Product used for unknown indication
     Dates: start: 20250731

REACTIONS (3)
  - Febrile neutropenia [Unknown]
  - Pyrexia [Unknown]
  - Cognitive disorder [Recovered/Resolved]

NARRATIVE: CASE EVENT DATE: 20250814
